FAERS Safety Report 18848990 (Version 5)
Quarter: 2023Q2

REPORT INFORMATION
  Report Type: Report from Study
  Country: DE (occurrence: DE)
  Receive Date: 20210205
  Receipt Date: 20230512
  Transmission Date: 20230722
  Serious: Yes (Hospitalization, Other)
  Sender: FDA-Public Use
  Company Number: DE-ABBVIE-21K-062-3760581-00

PATIENT
  Age: 67 Year
  Sex: Female

DRUGS (15)
  1. HUMIRA [Suspect]
     Active Substance: ADALIMUMAB
     Indication: Rheumatoid arthritis
     Dosage: LAST ADMINISTRATION DATE WAS DEC 2015.?FORM STRENGTH 40 MILIGRAM
     Route: 058
     Dates: start: 201506, end: 201512
  2. METHOTREXATE [Suspect]
     Active Substance: METHOTREXATE
     Indication: Rheumatoid arthritis
     Dosage: LAST ADMINISTRATION DATE WAS 2015.?FORM STRENGTH 20 MILLIGRAM
     Route: 065
     Dates: start: 20150602, end: 2015
  3. METHOTREXATE [Suspect]
     Active Substance: METHOTREXATE
     Indication: Rheumatoid arthritis
     Dosage: LAST ADMINISTRATION DATE WAS 2015.?FORM STRENGTH 20 MILLIGRAM
     Route: 065
     Dates: start: 20150320
  4. METHOTREXATE [Suspect]
     Active Substance: METHOTREXATE
     Indication: Rheumatoid arthritis
     Dosage: LAST ADMINISTRATION DATE WAS 2016.?FORM STRENGTH 20 MILLIGRAM
     Route: 065
     Dates: start: 20160321, end: 2016
  5. METHOTREXATE [Suspect]
     Active Substance: METHOTREXATE
     Indication: Rheumatoid arthritis
     Dosage: LAST ADMINISTRATION DATE WAS 2016.?FORM STRENGTH 20 MILLIGRAM
     Route: 065
     Dates: start: 20160915
  6. METHOTREXATE [Suspect]
     Active Substance: METHOTREXATE
     Indication: Rheumatoid arthritis
     Dosage: LAST ADMINISTRATION DATE WAS 2017.?FORM STRENGTH 20 MILLIGRAM
     Route: 065
     Dates: start: 20170309, end: 2017
  7. METHOTREXATE [Suspect]
     Active Substance: METHOTREXATE
     Indication: Rheumatoid arthritis
     Dosage: FORM STRENGTH 20 MILLIGRAM
     Route: 065
     Dates: start: 20170914
  8. METHOTREXATE [Suspect]
     Active Substance: METHOTREXATE
     Indication: Rheumatoid arthritis
     Dosage: FORM STRENGTH 20 MILLIGRAM
     Route: 065
     Dates: start: 20180913
  9. METHOTREXATE [Suspect]
     Active Substance: METHOTREXATE
     Indication: Rheumatoid arthritis
     Dosage: FORM STRENGTH 20 MILLIGRAM
     Route: 065
  10. METHOTREXATE [Suspect]
     Active Substance: METHOTREXATE
     Indication: Rheumatoid arthritis
     Dosage: 20 MILLIGRAM
  11. METHOTREXATE [Suspect]
     Active Substance: METHOTREXATE
     Indication: Rheumatoid arthritis
     Dosage: 20 MILLIGRAM
     Dates: start: 20150907
  12. METHOTREXATE [Suspect]
     Active Substance: METHOTREXATE
     Indication: Rheumatoid arthritis
     Dosage: 20 MILLIGRAM
  13. METHOTREXATE [Suspect]
     Active Substance: METHOTREXATE
     Indication: Rheumatoid arthritis
     Dosage: UNK
  14. ORENCIA [Suspect]
     Active Substance: ABATACEPT
     Indication: Rheumatoid arthritis
     Dosage: LAST ADMINISTRATION DATE WAS DEC 2017.?FORM STRENGTH 125 MILLIGRAM
     Route: 065
     Dates: start: 201609, end: 201712
  15. CIMZIA [Suspect]
     Active Substance: CERTOLIZUMAB PEGOL
     Indication: Rheumatoid arthritis
     Dosage: FORM STRENGTH 200 MILLIGRAM?LAST ADMINISTRATION DATE WAS JUN 2015.
     Route: 065
     Dates: start: 201503, end: 201506

REACTIONS (6)
  - Gastritis erosive [Unknown]
  - Carotid artery stenosis [Recovered/Resolved]
  - Colitis ischaemic [Recovered/Resolved]
  - Cerebrovascular accident [Unknown]
  - Cerebral infarction [Unknown]
  - Hypertension [Unknown]

NARRATIVE: CASE EVENT DATE: 20190123
